FAERS Safety Report 21674546 (Version 1)
Quarter: 2022Q4

REPORT INFORMATION
  Report Type: Spontaneous
  Country: US (occurrence: None)
  Receive Date: 20221201
  Receipt Date: 20221201
  Transmission Date: 20230113
  Serious: No
  Sender: FDA-Public Use
  Company Number: None

PATIENT
  Age: 3 Year
  Sex: Female

DRUGS (1)
  1. MIRALAX [Suspect]
     Active Substance: POLYETHYLENE GLYCOL 3350
     Indication: Constipation

REACTIONS (6)
  - Nervous system disorder [None]
  - Mental disorder [None]
  - Aggression [None]
  - Anger [None]
  - Mania [None]
  - Obsessive thoughts [None]

NARRATIVE: CASE EVENT DATE: 20221123
